FAERS Safety Report 8359513-2 (Version None)
Quarter: 2012Q2

REPORT INFORMATION
  Report Type: 
  Country: None (occurrence: None)
  Receive Date: 20120515
  Receipt Date: 20120507
  Transmission Date: 20120825
  Serious: Yes (Hospitalization)
  Sender: FDA-Public Use
  Company Number: CA-UCBSA-056954

PATIENT
  Age: 66 Year
  Sex: Female
  Weight: 63.05 kg

DRUGS (10)
  1. CIMZIA [Suspect]
     Indication: RHEUMATOID ARTHRITIS
     Route: 058
     Dates: start: 20110525
  2. SYNTHROID [Concomitant]
     Indication: HYPOTHYROIDISM
     Route: 048
  3. PANTOPRAZOLE SODIUM [Concomitant]
     Route: 048
  4. CALCIUM [Concomitant]
     Route: 048
  5. VOLTAREN [Concomitant]
     Indication: RHEUMATOID ARTHRITIS
     Route: 048
  6. FOLIC ACID [Concomitant]
     Dosage: 2X/WEEKLY
     Route: 048
     Dates: start: 20040101
  7. METHOTREXATE [Concomitant]
     Indication: RHEUMATOID ARTHRITIS
     Route: 058
     Dates: start: 20040101
  8. VITAMIN D [Concomitant]
     Dosage: WEEKLY
     Route: 048
  9. CIMZIA [Suspect]
     Route: 058
     Dates: start: 20110413, end: 20110511
  10. ACTONEL [Concomitant]
     Indication: OSTEOPOROSIS
     Route: 048

REACTIONS (2)
  - FALL [None]
  - PELVIC FRACTURE [None]
